FAERS Safety Report 8602036-3 (Version None)
Quarter: 2012Q3

REPORT INFORMATION
  Report Type: 
  Country: None (occurrence: None)
  Receive Date: 20120817
  Receipt Date: 20120813
  Transmission Date: 20120928
  Serious: Yes (Death, Other)
  Sender: FDA-Public Use
  Company Number: US-PFIZER INC-2012176291

PATIENT
  Age: 68 Year
  Sex: Male

DRUGS (2)
  1. SUTENT [Suspect]
     Indication: RENAL CANCER
     Dosage: 50 MG, DAILY
  2. MEGACE [Concomitant]
     Dosage: UNK

REACTIONS (4)
  - DEATH [None]
  - ASCITES [None]
  - FATIGUE [None]
  - NAUSEA [None]
